FAERS Safety Report 25669027 (Version 1)
Quarter: 2025Q3

REPORT INFORMATION
  Report Type: Report from Study
  Country: US (occurrence: US)
  Receive Date: 20250812
  Receipt Date: 20250812
  Transmission Date: 20251020
  Serious: No
  Sender: SUNOVION
  Company Number: US-SUMITOMO PHARMA SWITZERLAND GMBH-2024SPA002292

PATIENT
  Age: 63 Year
  Sex: Male

DRUGS (3)
  1. ORGOVYX [Suspect]
     Active Substance: RELUGOLIX
     Indication: Prostate cancer
     Route: 048
  2. ORGOVYX [Suspect]
     Active Substance: RELUGOLIX
     Dosage: 120 MG, QD
     Route: 048
     Dates: start: 20240816
  3. NUBEQA [Suspect]
     Active Substance: DAROLUTAMIDE
     Indication: Product used for unknown indication

REACTIONS (6)
  - Emotional disorder [Unknown]
  - Depressed mood [Unknown]
  - Hypobarism [Unknown]
  - General physical health deterioration [Unknown]
  - Anaemia [Recovering/Resolving]
  - Hot flush [Unknown]
